FAERS Safety Report 5563247-7 (Version None)
Quarter: 2007Q4

REPORT INFORMATION
  Report Type: 
  Country: None (occurrence: None)
  Receive Date: 20071217
  Receipt Date: 20071207
  Transmission Date: 20080405
  Serious: Yes (Hospitalization)
  Sender: FDA-Public Use
  Company Number: GB-ASTRAZENECA-2001AP02599

PATIENT
  Age: 19229 Day
  Sex: Female

DRUGS (8)
  1. ARIMIDEX [Suspect]
     Indication: BREAST CANCER
     Route: 048
     Dates: start: 19980528, end: 20030527
  2. CIPRAMIL [Concomitant]
     Indication: DEPRESSION
     Route: 048
  3. CO-DYDRAMOL [Concomitant]
     Indication: BREAST PAIN
     Route: 048
  4. LORMETAZEPAM [Concomitant]
     Indication: HYPNOTHERAPY
     Route: 048
  5. METOCLOPRAMIDE [Concomitant]
     Indication: NAUSEA
     Route: 048
  6. CITALOPRAM [Concomitant]
     Indication: DEPRESSION
     Route: 048
  7. ATORVASTATIN [Concomitant]
     Indication: HYPERCHOLESTEROLAEMIA
     Route: 048
  8. ASPIRIN [Concomitant]
     Indication: PROPHYLAXIS
     Route: 048

REACTIONS (1)
  - ERYTHROMELALGIA [None]
